FAERS Safety Report 8471562-2 (Version None)
Quarter: 2012Q2

REPORT INFORMATION
  Report Type: 
  Country: None (occurrence: None)
  Receive Date: 20120627
  Receipt Date: 20120625
  Transmission Date: 20120825
  Serious: Yes (Other)
  Sender: FDA-Public Use
  Company Number: US-GLAXOSMITHKLINE-A0976518A

PATIENT
  Sex: Male

DRUGS (1)
  1. TAGAMET [Suspect]
     Indication: DYSPEPSIA
     Route: 048

REACTIONS (3)
  - ABNORMAL DREAMS [None]
  - HALLUCINATION, TACTILE [None]
  - PANIC REACTION [None]
